FAERS Safety Report 20896273 (Version 1)
Quarter: 2022Q2

REPORT INFORMATION
  Report Type: Spontaneous
  Country: US (occurrence: None)
  Receive Date: 20220530
  Receipt Date: 20220530
  Transmission Date: 20220720
  Serious: No
  Sender: FDA-Public Use
  Company Number: None

PATIENT
  Age: 38 Year
  Sex: Female
  Weight: 81 kg

DRUGS (8)
  1. PAXLOVID [Suspect]
     Active Substance: NIRMATRELVIR\RITONAVIR
     Indication: COVID-19
     Dosage: OTHER QUANTITY : 30 TABLET(S);?FREQUENCY : TWICE A DAY;?
     Route: 048
     Dates: start: 20220528, end: 20220529
  2. Metepropal [Concomitant]
  3. IRON [Concomitant]
     Active Substance: IRON
  4. VITAMINS [Concomitant]
     Active Substance: VITAMINS
  5. FLONASE [Concomitant]
     Active Substance: FLUTICASONE PROPIONATE
  6. PEPCID [Concomitant]
     Active Substance: FAMOTIDINE
  7. PRILOSEC [Concomitant]
     Active Substance: OMEPRAZOLE MAGNESIUM
  8. ALLEGRA [Concomitant]
     Active Substance: FEXOFENADINE HYDROCHLORIDE

REACTIONS (1)
  - Haematochezia [None]

NARRATIVE: CASE EVENT DATE: 20220529
